FAERS Safety Report 15992108 (Version 3)
Quarter: 2019Q2

REPORT INFORMATION
  Report Type: Spontaneous
  Country: US (occurrence: US)
  Receive Date: 20190221
  Receipt Date: 20190426
  Transmission Date: 20190711
  Serious: Yes (Other)
  Sender: FDA-Public Use
  Company Number: US-ASTRAZENECA-2018SF21255

PATIENT
  Age: 21007 Day
  Sex: Male
  Weight: 93.9 kg

DRUGS (13)
  1. NEXIUM [Suspect]
     Active Substance: ESOMEPRAZOLE MAGNESIUM
     Route: 048
  2. PRILOSEC [Suspect]
     Active Substance: OMEPRAZOLE MAGNESIUM
     Route: 048
  3. PREDNISONE. [Concomitant]
     Active Substance: PREDNISONE
  4. CLONAZEPAM. [Concomitant]
     Active Substance: CLONAZEPAM
  5. VERAPAMIL [Concomitant]
     Active Substance: VERAPAMIL HYDROCHLORIDE
  6. PRILOSEC [Suspect]
     Active Substance: OMEPRAZOLE MAGNESIUM
     Dosage: GENERIC
     Route: 048
     Dates: start: 20180630
  7. PROTONIX [Suspect]
     Active Substance: PANTOPRAZOLE SODIUM
     Route: 065
  8. AMLODIPINE [Concomitant]
     Active Substance: AMLODIPINE BESYLATE
  9. CARVEDILOL. [Concomitant]
     Active Substance: CARVEDILOL
  10. PREVACID [Suspect]
     Active Substance: LANSOPRAZOLE
     Route: 065
  11. LOSARTAN. [Concomitant]
     Active Substance: LOSARTAN
  12. GABAPENTIN. [Concomitant]
     Active Substance: GABAPENTIN
  13. HYDRALAZINE [Concomitant]
     Active Substance: HYDRALAZINE HYDROCHLORIDE

REACTIONS (6)
  - Renal failure [Unknown]
  - Nephrogenic anaemia [Unknown]
  - Chronic kidney disease [Not Recovered/Not Resolved]
  - End stage renal disease [Not Recovered/Not Resolved]
  - Hyperparathyroidism secondary [Unknown]
  - Acute kidney injury [Not Recovered/Not Resolved]

NARRATIVE: CASE EVENT DATE: 2014
